FAERS Safety Report 9988821 (Version 1)
Quarter: 2013Q4

REPORT INFORMATION
  Report Type: Spontaneous
  Country: GB (occurrence: None)
  Receive Date: 20131015
  Receipt Date: 20131015
  Transmission Date: 20140711
  Serious: Yes (Other)
  Sender: FDA-Public Use
  Company Number: AUR-APL-2013-03455

PATIENT
  Age: 61 Year
  Sex: Female
  Weight: 63.5 kg

DRUGS (9)
  1. SERTRALINE (SERTRALINE) [Suspect]
     Indication: DEPRESSION
     Dates: start: 20130327, end: 20130328
  2. PARACETAMOL (PARACETAMOL) [Suspect]
     Indication: PRODUCT USED FOR UNKNOWN INDICATION
  3. AMITRIPTYLINE (AMITRIPTYLINE) [Suspect]
     Indication: PAIN
  4. ZOLPIDEM (ZOLPIDEM) [Suspect]
  5. DIAZEPAM (DIAZEPAM) [Concomitant]
  6. GLYCERIN (GLYCEROL) [Concomitant]
  7. LACTULOSE (LACTULOSE) [Concomitant]
  8. SENNA (SENNA ALEXANDRIA ) [Concomitant]
  9. THYROXINE (LEVOTHYROXINE SODIUM) [Concomitant]

REACTIONS (13)
  - Headache [None]
  - Neck pain [None]
  - Fatigue [None]
  - Pain in extremity [None]
  - Pain in extremity [None]
  - Nausea [None]
  - Gait disturbance [None]
  - Feeling drunk [None]
  - Drooling [None]
  - Contusion [None]
  - Blood pressure fluctuation [None]
  - Hyperthyroidism [None]
  - Blood glucose fluctuation [None]
